FAERS Safety Report 4748148-6 (Version None)
Quarter: 2005Q3

REPORT INFORMATION
  Report Type: 
  Country: None (occurrence: None)
  Receive Date: 20050818
  Receipt Date: 20050715
  Transmission Date: 20060218
  Serious: Yes (Other)
  Sender: FDA-Public Use
  Company Number: PHNR2005AU01133

PATIENT
  Sex: Female

DRUGS (3)
  1. FEMARA [Suspect]
     Route: 048
     Dates: start: 20041001, end: 20050301
  2. POTASSIUM CHLORIDE [Concomitant]
     Dosage: 0.5 DAILY
  3. FOLIC ACID [Concomitant]

REACTIONS (3)
  - ALOPECIA [None]
  - ARTHRITIS [None]
  - BLINDNESS [None]
